FAERS Safety Report 25617611 (Version 2)
Quarter: 2025Q3

REPORT INFORMATION
  Report Type: Spontaneous
  Country: EU (occurrence: EU)
  Receive Date: 20250729
  Receipt Date: 20250812
  Transmission Date: 20251020
  Serious: Yes (Hospitalization, Other)
  Sender: SANOFI AVENTIS
  Company Number: EU-CHEPLA-2025003780

PATIENT
  Age: 74 Year
  Sex: Male

DRUGS (10)
  1. OXALIPLATIN [Suspect]
     Active Substance: OXALIPLATIN
     Indication: Colorectal cancer metastatic
     Dates: start: 2021
  2. CAPECITABINE [Suspect]
     Active Substance: CAPECITABINE
     Indication: Colorectal cancer metastatic
     Route: 048
     Dates: start: 2022, end: 20230306
  3. BEVACIZUMAB [Suspect]
     Active Substance: BEVACIZUMAB
     Indication: Colorectal cancer metastatic
     Dates: start: 2022, end: 20230306
  4. FLUOROURACIL [Suspect]
     Active Substance: FLUOROURACIL
     Indication: Colorectal cancer metastatic
     Dates: start: 2021
  5. LEUCOVORIN [Suspect]
     Active Substance: LEUCOVORIN\LEUCOVORIN CALCIUM
     Indication: Colorectal cancer metastatic
     Dates: start: 2021
  6. IRINOTECAN [Suspect]
     Active Substance: IRINOTECAN
     Indication: Colorectal cancer metastatic
     Dates: start: 2022, end: 20230306
  7. PANITUMUMAB [Suspect]
     Active Substance: PANITUMUMAB
     Indication: Colorectal cancer metastatic
     Dates: start: 2021
  8. PANITUMUMAB [Suspect]
     Active Substance: PANITUMUMAB
  9. CETUXIMAB [Concomitant]
     Active Substance: CETUXIMAB
  10. ENCORAFENIB [Concomitant]
     Active Substance: ENCORAFENIB

REACTIONS (8)
  - COVID-19 pneumonia [Recovered/Resolved]
  - Palmar-plantar erythrodysaesthesia syndrome [Unknown]
  - Toxicity to various agents [Unknown]
  - Neurological symptom [Unknown]
  - Haematotoxicity [Unknown]
  - Anaemia [Unknown]
  - Neutropenia [Unknown]
  - Hypertension [Unknown]
